FAERS Safety Report 7713575-1 (Version None)
Quarter: 2011Q3

REPORT INFORMATION
  Report Type: 
  Country: None (occurrence: None)
  Receive Date: 20110826
  Receipt Date: 20110822
  Transmission Date: 20111222
  Serious: Yes (Other)
  Sender: FDA-Public Use
  Company Number: CHPA2011US11267

PATIENT
  Age: 77 Year
  Sex: Female

DRUGS (6)
  1. COREG [Concomitant]
     Indication: CARDIOVASCULAR EVENT PROPHYLAXIS
     Dosage: 20 MG, UNK
     Route: 048
  2. DRUG THERAPY NOS [Concomitant]
     Indication: NEUROPATHY PERIPHERAL
     Dosage: UNK, ONCE A DAY
     Route: 048
  3. ESTRADIOL [Concomitant]
     Indication: HORMONE REPLACEMENT THERAPY
     Dosage: 1 MG, UNK
     Route: 048
  4. TYLENOL-500 [Concomitant]
     Indication: PAIN
     Dosage: 500 MG, QD
  5. COUMADIN [Suspect]
     Indication: ANTICOAGULANT THERAPY
     Dosage: 5-15MG, UNK
     Route: 048
  6. VOLTAREN [Suspect]
     Indication: PAIN
     Dosage: SMALL AMOUNT, OCCASIONALLY
     Route: 061
     Dates: start: 20080101

REACTIONS (12)
  - OFF LABEL USE [None]
  - PRURITUS [None]
  - TRANSFUSION [None]
  - THROMBOSIS [None]
  - INSOMNIA [None]
  - CARDIAC PACEMAKER REPLACEMENT [None]
  - WRIST FRACTURE [None]
  - HAEMORRHAGE [None]
  - WRONG TECHNIQUE IN DRUG USAGE PROCESS [None]
  - FALL [None]
  - JOINT SWELLING [None]
  - DRUG ADMINISTERED AT INAPPROPRIATE SITE [None]
